FAERS Safety Report 9203470 (Version 1)
Quarter: 2013Q2

REPORT INFORMATION
  Report Type: Spontaneous
  Country: US (occurrence: US)
  Receive Date: 20130402
  Receipt Date: 20130402
  Transmission Date: 20140414
  Serious: No
  Sender: FDA-Public Use
  Company Number: US-PFIZER INC-2013099634

PATIENT
  Sex: Female
  Weight: 56.69 kg

DRUGS (3)
  1. ADVIL ALLERGY AND CONGESTION RELIEF [Suspect]
     Indication: HYPERSENSITIVITY
     Dosage: UNK, DAILY
     Dates: start: 20130324, end: 20130325
  2. ADVIL ALLERGY AND CONGESTION RELIEF [Suspect]
     Indication: RHINORRHOEA
  3. ADVIL ALLERGY AND CONGESTION RELIEF [Suspect]
     Indication: RESPIRATORY TRACT CONGESTION

REACTIONS (2)
  - Swelling face [Recovering/Resolving]
  - Eye swelling [Recovering/Resolving]
